FAERS Safety Report 23753734 (Version 1)
Quarter: 2024Q2

REPORT INFORMATION
  Report Type: Spontaneous
  Country: RO (occurrence: RO)
  Receive Date: 20240417
  Receipt Date: 20240417
  Transmission Date: 20240715
  Serious: Yes (Other)
  Sender: FDA-Public Use
  Company Number: RO-009507513-2404ROU007083

PATIENT
  Age: 33 Year
  Sex: Female

DRUGS (1)
  1. DELSTRIGO [Suspect]
     Active Substance: DORAVIRINE\LAMIVUDINE\TENOFOVIR DISOPROXIL FUMARATE
     Dosage: UNK
     Route: 048

REACTIONS (5)
  - Interstitial lung abnormality [Unknown]
  - Pulmonary hilar enlargement [Unknown]
  - Very low density lipoprotein increased [Unknown]
  - Blood triglycerides increased [Unknown]
  - Weight increased [Unknown]

NARRATIVE: CASE EVENT DATE: 20240401
